FAERS Safety Report 7713018-8 (Version None)
Quarter: 2011Q3

REPORT INFORMATION
  Report Type: 
  Country: None (occurrence: None)
  Receive Date: 20110826
  Receipt Date: 20091126
  Transmission Date: 20111222
  Serious: Yes (Other)
  Sender: FDA-Public Use
  Company Number: DE-BAYER-2011-015156

PATIENT
  Age: 34 Year
  Sex: Female

DRUGS (2)
  1. MIRENA [Suspect]
     Dosage: UNK
  2. YASMIN [Suspect]
     Dosage: UNK

REACTIONS (3)
  - METRORRHAGIA [None]
  - BRIEF PSYCHOTIC DISORDER, WITH POSTPARTUM ONSET [None]
  - MIGRAINE [None]
